FAERS Safety Report 21467013 (Version 1)
Quarter: 2022Q4

REPORT INFORMATION
  Report Type: Spontaneous
  Country: US (occurrence: None)
  Receive Date: 20221017
  Receipt Date: 20221017
  Transmission Date: 20230112
  Serious: Yes (Other)
  Sender: FDA-Public Use
  Company Number: None

PATIENT
  Age: 59 Year
  Sex: Female
  Weight: 49.5 kg

DRUGS (1)
  1. TRULICITY [Suspect]
     Active Substance: DULAGLUTIDE
     Indication: Latent autoimmune diabetes in adults
     Dosage: OTHER QUANTITY : 1 INJECTION(S);?OTHER FREQUENCY : WEEKLY;?
     Route: 030
     Dates: start: 20220929, end: 20220929

REACTIONS (7)
  - Nausea [None]
  - Headache [None]
  - Gastrooesophageal reflux disease [None]
  - Eructation [None]
  - Oropharyngeal pain [None]
  - Dysgeusia [None]
  - Weight decreased [None]

NARRATIVE: CASE EVENT DATE: 20220929
